FAERS Safety Report 20802543 (Version 1)
Quarter: 2022Q2

REPORT INFORMATION
  Report Type: Spontaneous
  Country: US (occurrence: None)
  Receive Date: 20220509
  Receipt Date: 20220509
  Transmission Date: 20220721
  Serious: Yes (Other)
  Sender: FDA-Public Use
  Company Number: None

PATIENT
  Age: 68 Year
  Sex: Male
  Weight: 103.05 kg

DRUGS (18)
  1. EVUSHELD [Suspect]
     Active Substance: CILGAVIMAB\TIXAGEVIMAB
     Indication: Plasma cell myeloma
     Route: 030
     Dates: start: 20220503, end: 20220503
  2. EVUSHELD [Suspect]
     Active Substance: CILGAVIMAB\TIXAGEVIMAB
     Indication: Immunodeficiency
  3. ROSUVASTATIN [Concomitant]
     Active Substance: ROSUVASTATIN
  4. GABAPENTIN [Concomitant]
     Active Substance: GABAPENTIN
  5. HYDROMORPHONE [Concomitant]
     Active Substance: HYDROMORPHONE
  6. ACYCLOVIR [Concomitant]
     Active Substance: ACYCLOVIR
  7. TAMSULOSIN [Concomitant]
     Active Substance: TAMSULOSIN
  8. LISINOPRIL [Concomitant]
     Active Substance: LISINOPRIL
  9. TRAZODONE [Concomitant]
     Active Substance: TRAZODONE HYDROCHLORIDE
  10. OMEPRAZOLE [Concomitant]
     Active Substance: OMEPRAZOLE
  11. FINASTERIDE [Concomitant]
     Active Substance: FINASTERIDE
  12. POMALIDOMIDE [Concomitant]
     Active Substance: POMALIDOMIDE
  13. ZOMETA [Concomitant]
     Active Substance: ZOLEDRONIC ACID
  14. ASPIRIN [Concomitant]
     Active Substance: ASPIRIN
  15. CALCIUM\VITAMIN D [Concomitant]
     Active Substance: CALCIUM\VITAMIN D
  16. HERBALS\SAW PALMETTO [Concomitant]
     Active Substance: HERBALS\SAW PALMETTO
  17. CBG tincture [Concomitant]
  18. Hawthorne tincture [Concomitant]

REACTIONS (3)
  - Chills [None]
  - Pyrexia [None]
  - Tremor [None]

NARRATIVE: CASE EVENT DATE: 20220505
